FAERS Safety Report 15124311 (Version 1)
Quarter: 2018Q3

REPORT INFORMATION
  Report Type: Spontaneous
  Country: BG (occurrence: BG)
  Receive Date: 20180710
  Receipt Date: 20180710
  Transmission Date: 20181010
  Serious: Yes (Hospitalization, Other)
  Sender: FDA-Public Use
  Company Number: BG-TOLMAR, INC.-2018BG006997

PATIENT

DRUGS (1)
  1. ELIGARD [Suspect]
     Active Substance: LEUPROLIDE ACETATE
     Indication: PROSTATE CANCER
     Dosage: 45 MG, EVERY 6 MONTH
     Route: 065
     Dates: start: 201610

REACTIONS (8)
  - Prostate cancer [Unknown]
  - Cardiac failure chronic [Unknown]
  - Spinal compression fracture [Unknown]
  - Off label use [Unknown]
  - Hepatic cirrhosis [Unknown]
  - Metastases to bone [Unknown]
  - Acute myocardial infarction [Unknown]
  - Prostatic specific antigen increased [Unknown]

NARRATIVE: CASE EVENT DATE: 201801
